FAERS Safety Report 6732295-3 (Version None)
Quarter: 2010Q2

REPORT INFORMATION
  Report Type: 
  Country: None (occurrence: None)
  Receive Date: 20100519
  Receipt Date: 20100511
  Transmission Date: 20101027
  Serious: Yes (Hospitalization)
  Sender: FDA-Public Use
  Company Number: US-CELGENEUS-163-21880-10050869

PATIENT
  Sex: Male

DRUGS (2)
  1. REVLIMID [Suspect]
     Indication: MULTIPLE MYELOMA
     Route: 048
     Dates: start: 20060901
  2. REVLIMID [Suspect]
     Route: 048
     Dates: start: 20060801, end: 20060901

REACTIONS (2)
  - HEART RATE IRREGULAR [None]
  - WHITE BLOOD CELL COUNT DECREASED [None]
